FAERS Safety Report 23234957 (Version 1)
Quarter: 2023Q4

REPORT INFORMATION
  Report Type: Spontaneous
  Country: AU (occurrence: AU)
  Receive Date: 20231128
  Receipt Date: 20231128
  Transmission Date: 20240110
  Serious: Yes (Other)
  Sender: FDA-Public Use
  Company Number: AU-LUNDBECK-DKLU3070572

PATIENT
  Sex: Female

DRUGS (1)
  1. ABILIFY MAINTENA [Suspect]
     Active Substance: ARIPIPRAZOLE
     Indication: Product used for unknown indication
     Dosage: 400 MG
     Route: 065

REACTIONS (13)
  - Narcolepsy [Unknown]
  - Neutropenia [Unknown]
  - Suicidal ideation [Unknown]
  - Body temperature fluctuation [Unknown]
  - Bradyphrenia [Unknown]
  - Sleep-related eating disorder [Unknown]
  - Peripheral swelling [Unknown]
  - Somnambulism [Unknown]
  - Hypersomnia [Unknown]
  - Weight increased [Unknown]
  - Hypertension [Unknown]
  - Dizziness [Unknown]
  - Anxiety [Unknown]
